FAERS Safety Report 5502192-X (Version None)
Quarter: 2007Q4

REPORT INFORMATION
  Report Type: 
  Country: None (occurrence: None)
  Receive Date: 20071019
  Receipt Date: 20070215
  Transmission Date: 20080405
  Serious: Yes (Other)
  Sender: FDA-Public Use
  Company Number: PHEH2007US02089

PATIENT
  Age: 65 Year
  Sex: Female
  Weight: 59 kg

DRUGS (1)
  1. ZOMETA [Suspect]
     Dosage: 4 (UNITS NOT SPECIFIED) EVERY 4 WEEKS
     Dates: start: 20030101, end: 20070101

REACTIONS (1)
  - PAIN IN JAW [None]
